FAERS Safety Report 9817847 (Version 1)
Quarter: 2013Q4

REPORT INFORMATION
  Report Type: Spontaneous
  Country: US (occurrence: None)
  Receive Date: 20131223
  Receipt Date: 20131223
  Transmission Date: 20140711
  Serious: Yes (Other)
  Sender: FDA-Public Use
  Company Number: 220316

PATIENT
  Age: 66 Year
  Sex: Male

DRUGS (4)
  1. PICATO [Suspect]
     Indication: ACTINIC KERATOSIS
     Dosage: (1 IN 1 D)
     Dates: start: 20130125, end: 20130127
  2. HCTZ (HYDROCHLOROTHIAZIDE) [Concomitant]
  3. VITAMINS/MINERALS 9VITAMINS WITH MINERALS) [Concomitant]
  4. PROSTATE MED (ALL OTHER THERAPEUTIC PRODUCTS) [Concomitant]

REACTIONS (3)
  - Nausea [None]
  - Drug administered at inappropriate site [None]
  - Drug administration error [None]
